FAERS Safety Report 10591232 (Version 2)
Quarter: 2014Q4

REPORT INFORMATION
  Report Type: Spontaneous
  Country: US (occurrence: US)
  Receive Date: 20141118
  Receipt Date: 20141118
  Transmission Date: 20150529
  Serious: No
  Sender: FDA-Public Use
  Company Number: US-PFIZER INC-2014308763

PATIENT
  Age: 55 Year
  Sex: Female
  Weight: 76 kg

DRUGS (5)
  1. HYDROCODONE [Concomitant]
     Active Substance: HYDROCODONE
     Indication: BACK PAIN
     Dosage: 5MG/325 MG, 1 TABLET  3X/DAY
  2. CORTICOSTEROIDS [Suspect]
     Active Substance: CORTICOSTEROID NOS
     Indication: BACK PAIN
     Route: 008
  3. LYRICA [Suspect]
     Active Substance: PREGABALIN
     Indication: BACK PAIN
     Dosage: 50 MG, DAILY
     Route: 048
     Dates: start: 20141111, end: 20141111
  4. MOTRIN [Concomitant]
     Active Substance: IBUPROFEN
     Dosage: 600 MG, DAILY
  5. TRAMADOL HCL [Suspect]
     Active Substance: TRAMADOL HYDROCHLORIDE

REACTIONS (2)
  - Feeling abnormal [Unknown]
  - Palpitations [Unknown]

NARRATIVE: CASE EVENT DATE: 20141111
